FAERS Safety Report 7943590-4 (Version None)
Quarter: 2011Q4

REPORT INFORMATION
  Report Type: 
  Country: None (occurrence: None)
  Receive Date: 20111128
  Receipt Date: 20111116
  Transmission Date: 20120403
  Serious: Yes (Other)
  Sender: FDA-Public Use
  Company Number: SI-ELI_LILLY_AND_COMPANY-SI201111006602

PATIENT
  Sex: Female

DRUGS (1)
  1. FORTEO [Suspect]
     Indication: OSTEOPOROSIS
     Dosage: UNK UNK, QD
     Dates: start: 20111109

REACTIONS (6)
  - INJECTION SITE ERYTHEMA [None]
  - NASOPHARYNGITIS [None]
  - FATIGUE [None]
  - SOMNOLENCE [None]
  - CONVULSION [None]
  - HOT FLUSH [None]
